FAERS Safety Report 6678189-3 (Version None)
Quarter: 2010Q2

REPORT INFORMATION
  Report Type: 
  Country: None (occurrence: None)
  Receive Date: 20100408
  Receipt Date: 20100408
  Transmission Date: 20101027
  Serious: Yes (Hospitalization)
  Sender: FDA-Public Use
  Company Number: None

PATIENT
  Age: 60 Year
  Sex: Male
  Weight: 92.7 kg

DRUGS (12)
  1. CISPLATIN [Suspect]
     Indication: SMALL CELL LUNG CANCER EXTENSIVE STAGE
     Dosage: 45MQ/M2, IV Q3WKS
     Route: 042
     Dates: start: 20100208
  2. ETOPOSIDE [Suspect]
     Indication: SMALL CELL LUNG CANCER EXTENSIVE STAGE
     Dosage: 90MG/M2, IV DAYS1-3,Q3WK
     Route: 042
     Dates: start: 20080201, end: 20100210
  3. SORAFENIB [Suspect]
     Indication: SMALL CELL LUNG CANCER EXTENSIVE STAGE
     Dosage: 200MG PO QD
     Dates: start: 20080201, end: 20100219
  4. FAMOTIDINE [Concomitant]
  5. SIMETHICONE [Concomitant]
  6. APREPITANT [Suspect]
  7. PROCHLORPERAZINE MALEATE [Concomitant]
  8. LORAZEPAM [Concomitant]
  9. ATENOLOL [Concomitant]
  10. , [Concomitant]
  11. NORVASC [Concomitant]
  12. DULOXETINE HYDROCHLORIDE [Concomitant]

REACTIONS (12)
  - ARTHRALGIA [None]
  - ATRIAL FIBRILLATION [None]
  - DYSPHAGIA [None]
  - GINGIVAL BLEEDING [None]
  - IATROGENIC INJURY [None]
  - LARYNGEAL OEDEMA [None]
  - LOCAL SWELLING [None]
  - OBSTRUCTION [None]
  - PELVIC PAIN [None]
  - PHARYNGEAL HAEMATOMA [None]
  - POST PROCEDURAL COMPLICATION [None]
  - RESPIRATORY DISORDER [None]
